FAERS Safety Report 12789083 (Version 1)
Quarter: 2016Q3

REPORT INFORMATION
  Report Type: Spontaneous
  Country: US (occurrence: US)
  Receive Date: 20160928
  Receipt Date: 20160928
  Transmission Date: 20161109
  Serious: No
  Sender: FDA-Public Use
  Company Number: US-PFIZER INC-2016450929

PATIENT
  Age: 55 Year
  Sex: Female

DRUGS (11)
  1. FISH OIL 1-A-DAY + VITAMIN D3 [Concomitant]
  2. ADVIL [Concomitant]
     Active Substance: IBUPROFEN
  3. IRON [Concomitant]
     Active Substance: IRON
  4. VITAMIN D /00107901/ [Concomitant]
     Active Substance: ERGOCALCIFEROL
  5. XELJANZ [Suspect]
     Active Substance: TOFACITINIB CITRATE
     Indication: RHEUMATOID ARTHRITIS
     Dosage: 5 MG, 2X/DAY
     Route: 048
     Dates: start: 201605
  6. SPIRONOLACTONE. [Concomitant]
     Active Substance: SPIRONOLACTONE
  7. RIDAURA [Concomitant]
     Active Substance: AURANOFIN
  8. FLONASE [Concomitant]
     Active Substance: FLUTICASONE PROPIONATE
  9. LORAZEPAM. [Concomitant]
     Active Substance: LORAZEPAM
  10. VITAMIN B12 + FOLIC ACID [Concomitant]
  11. CALTRATE WITH VITAMIN D [Concomitant]
     Active Substance: CALCIUM CARBONATE\CHOLECALCIFEROL

REACTIONS (1)
  - Abdominal pain upper [Unknown]
